FAERS Safety Report 11146265 (Version 2)
Quarter: 2015Q3

REPORT INFORMATION
  Report Type: Spontaneous
  Country: US (occurrence: US)
  Receive Date: 20150528
  Receipt Date: 20150720
  Transmission Date: 20151125
  Serious: No
  Sender: FDA-Public Use
  Company Number: US-GILEAD-2015-0155675

PATIENT
  Age: 65 Year
  Sex: Male
  Weight: 107.94 kg

DRUGS (3)
  1. HARVONI [Suspect]
     Active Substance: LEDIPASVIR\SOFOSBUVIR
     Indication: HEPATITIS C
     Dosage: 1 DF, UNK
     Route: 048
     Dates: start: 201504
  2. ATORVASTATIN [Concomitant]
     Active Substance: ATORVASTATIN
     Route: 048
  3. CIALIS [Concomitant]
     Active Substance: TADALAFIL
     Route: 048

REACTIONS (3)
  - Vertigo [Recovered/Resolved]
  - Confusional state [Recovered/Resolved]
  - Headache [Unknown]
